FAERS Safety Report 4971082-3 (Version None)
Quarter: 2006Q1

REPORT INFORMATION
  Report Type: 
  Country: None (occurrence: None)
  Receive Date: 20060207
  Receipt Date: 20050117
  Transmission Date: 20060701
  Serious: Yes (Hospitalization)
  Sender: FDA-Public Use
  Company Number: USA030331428

PATIENT
  Age: 85 Year
  Sex: Female
  Weight: 32 kg

DRUGS (10)
  1. FORTEO [Suspect]
     Indication: OSTEOPOROSIS
     Dosage: 20 UG/1 DAY
     Dates: start: 20030308, end: 20050115
  2. EVISTA [Suspect]
     Indication: OSTEOPOROSIS
     Dates: start: 20000101, end: 20040101
  3. CALCIUM GLUCONATE [Concomitant]
  4. FOSAMAX [Concomitant]
  5. NORVASC [Concomitant]
  6. VITAMINS [Concomitant]
  7. MAGNESIUM (MAGNESIUM ASPARTATE) [Concomitant]
  8. CALCIUM MAGNESIUM [Concomitant]
  9. TOPROL-XL [Concomitant]
  10. FOSAMAX [Concomitant]

REACTIONS (23)
  - ALOPECIA [None]
  - ASTHENIA [None]
  - BODY HEIGHT DECREASED [None]
  - CONFUSIONAL STATE [None]
  - CONSTIPATION [None]
  - CONTUSION [None]
  - DIFFICULTY IN WALKING [None]
  - DYSPNOEA [None]
  - FALL [None]
  - FEELING ABNORMAL [None]
  - GAIT DISTURBANCE [None]
  - INJECTION SITE ERYTHEMA [None]
  - INJECTION SITE HAEMORRHAGE [None]
  - JOINT SWELLING [None]
  - MEMORY IMPAIRMENT [None]
  - MOBILITY DECREASED [None]
  - OEDEMA PERIPHERAL [None]
  - SKIN DISCOLOURATION [None]
  - SPEECH DISORDER [None]
  - VASODILATATION [None]
  - VISUAL DISTURBANCE [None]
  - WALKING AID USER [None]
  - WEIGHT DECREASED [None]
